FAERS Safety Report 9036200 (Version 1)
Quarter: 2013Q1

REPORT INFORMATION
  Report Type: Spontaneous
  Country: JP (occurrence: None)
  Receive Date: 20130116
  Receipt Date: 20130116
  Transmission Date: 20140127
  Serious: Yes (Hospitalization)
  Sender: FDA-Public Use
  Company Number: TPA2013A00732

PATIENT
  Age: 63 Year
  Sex: Male

DRUGS (7)
  1. FEBURIC (FEBUXOSTAT) [Suspect]
     Indication: HYPERURICAEMIA
     Route: 048
     Dates: start: 20120901, end: 20121012
  2. PARIET (RABEPRAZOLE SODIUM) [Concomitant]
  3. BAYASPIRIN (ACETYLSALICYLIC ACID) [Concomitant]
  4. ZETIA (EZETIMIBE) [Concomitant]
  5. TAMATRIL (IMIDAPRIL HYDROCHLORIDE) [Concomitant]
  6. WARFARIN (WARFARIN) [Concomitant]
  7. GLUCOBAY (ACARBOSE) [Concomitant]

REACTIONS (2)
  - VIIth nerve paralysis [None]
  - Neuropathy peripheral [None]
